FAERS Safety Report 6996830-2 (Version None)
Quarter: 2010Q3

REPORT INFORMATION
  Report Type: 
  Country: None (occurrence: None)
  Receive Date: 20100918
  Receipt Date: 20090710
  Transmission Date: 20110219
  Serious: No
  Sender: FDA-Public Use
  Company Number: US-WYE-H10114109

PATIENT
  Age: 54 Year
  Sex: Female
  Weight: 79.45 kg

DRUGS (5)
  1. EFFEXOR XR [Suspect]
     Indication: DEPRESSION
     Route: 048
     Dates: start: 20081001, end: 20090601
  2. EFFEXOR XR [Suspect]
     Dates: start: 20090601, end: 20090601
  3. EFFEXOR XR [Suspect]
     Route: 048
     Dates: start: 20090601, end: 20090705
  4. LORAZEPAM [Concomitant]
  5. AMBIEN [Concomitant]

REACTIONS (5)
  - ASTHENIA [None]
  - DIZZINESS [None]
  - DRUG WITHDRAWAL SYNDROME [None]
  - FEELING ABNORMAL [None]
  - HEADACHE [None]
